FAERS Safety Report 10934035 (Version 1)
Quarter: 2015Q1

REPORT INFORMATION
  Report Type: Spontaneous
  Country: US (occurrence: US)
  Receive Date: 20150320
  Receipt Date: 20150320
  Transmission Date: 20150721
  Serious: No
  Sender: FDA-Public Use
  Company Number: US-PFIZER INC-2015095554

PATIENT
  Age: 51 Year
  Sex: Male
  Weight: 67 kg

DRUGS (9)
  1. NORCO [Concomitant]
     Active Substance: ACETAMINOPHEN\HYDROCODONE BITARTRATE
     Indication: PAIN IN EXTREMITY
     Dosage: 10/325, 3X/DAY
  2. OMEPRAZOLE. [Concomitant]
     Active Substance: OMEPRAZOLE
     Indication: ABDOMINAL DISCOMFORT
     Dosage: 20 MG, 2X/DAY
  3. GABAPENTIN. [Suspect]
     Active Substance: GABAPENTIN
     Indication: NEUROPATHY PERIPHERAL
  4. BABY ASPIRIN [Concomitant]
     Active Substance: ASPIRIN
     Indication: ANTICOAGULANT THERAPY
     Dosage: 81 MG, 1X/DAY IN THE MORNING
     Route: 048
  5. CILOSTAZOL. [Concomitant]
     Active Substance: CILOSTAZOL
     Indication: PAIN IN EXTREMITY
     Dosage: 100 MG, 2X/DAY
  6. NABUMETONE. [Concomitant]
     Active Substance: NABUMETONE
     Indication: ANTIINFLAMMATORY THERAPY
     Dosage: 750 MG, 2X/DAY
  7. NOVOLOG [Concomitant]
     Active Substance: INSULIN ASPART
     Dosage: UNK
  8. CRESTOR [Concomitant]
     Active Substance: ROSUVASTATIN CALCIUM
     Indication: BLOOD CHOLESTEROL
     Dosage: 10 MG, 1X/DAY IN THE MORNING
     Route: 048
  9. GABAPENTIN. [Suspect]
     Active Substance: GABAPENTIN
     Indication: NEURALGIA
     Dosage: 600 MG, 3X/DAY

REACTIONS (1)
  - Drug ineffective [Not Recovered/Not Resolved]

NARRATIVE: CASE EVENT DATE: 2012
